FAERS Safety Report 8541102-8 (Version None)
Quarter: 2012Q3

REPORT INFORMATION
  Report Type: 
  Country: None (occurrence: None)
  Receive Date: 20120726
  Receipt Date: 20110822
  Transmission Date: 20120928
  Serious: No
  Sender: FDA-Public Use
  Company Number: US-ASTRAZENECA-2011SE50525

PATIENT
  Sex: Male

DRUGS (1)
  1. SEROQUEL [Suspect]
     Route: 048

REACTIONS (6)
  - SUICIDAL IDEATION [None]
  - ANXIETY [None]
  - BIPOLAR DISORDER [None]
  - INSOMNIA [None]
  - NERVOUSNESS [None]
  - HALLUCINATION [None]
